FAERS Safety Report 10076461 (Version 2)
Quarter: 2014Q2

REPORT INFORMATION
  Report Type: Spontaneous
  Country: US (occurrence: US)
  Receive Date: 20140414
  Receipt Date: 20140502
  Transmission Date: 20141212
  Serious: Yes (Death, Hospitalization)
  Sender: FDA-Public Use
  Company Number: US-JNJFOC-20140408840

PATIENT
  Age: 70 Year
  Sex: Male
  Weight: 88 kg

DRUGS (17)
  1. IMBRUVICA [Suspect]
     Indication: MANTLE CELL LYMPHOMA
     Route: 048
     Dates: start: 20140321, end: 20140401
  2. IMBRUVICA [Suspect]
     Indication: MANTLE CELL LYMPHOMA
     Route: 048
     Dates: start: 20140117, end: 20140307
  3. ALBUTEROL [Concomitant]
     Indication: DYSPNOEA
     Route: 055
  4. BUDESONIDE [Concomitant]
     Indication: DYSPNOEA
     Route: 055
  5. CITALOPRAM HYDROBROMIDE [Concomitant]
     Route: 048
  6. DIAZEPAM [Concomitant]
     Route: 048
  7. DIAZEPAM [Concomitant]
     Route: 048
  8. DIPHENHYDRAMINE [Concomitant]
     Route: 048
  9. LIDOCAINE [Concomitant]
     Route: 048
  10. NYSTATIN [Concomitant]
     Route: 048
  11. GABAPENTIN [Concomitant]
     Route: 048
  12. HYDROXYZINE PAMOATE [Concomitant]
     Route: 048
  13. LEVOFLOXACIN [Concomitant]
     Route: 048
  14. OXYCODONE HYDROCHLORIDE [Concomitant]
     Indication: PAIN
     Route: 048
  15. PROCHLORPERAZINE MALEATE [Concomitant]
     Indication: NAUSEA
     Route: 048
  16. RANITIDINE HYDROCHLORIDE [Concomitant]
     Route: 048
  17. VITAMIN D3 [Concomitant]
     Route: 048

REACTIONS (4)
  - Encephalopathy [Not Recovered/Not Resolved]
  - Urosepsis [Unknown]
  - Disease progression [Fatal]
  - Subdural haematoma [Not Recovered/Not Resolved]
